FAERS Safety Report 6107321-5 (Version None)
Quarter: 2009Q1

REPORT INFORMATION
  Report Type: 
  Country: None (occurrence: None)
  Receive Date: 20090309
  Receipt Date: 20090204
  Transmission Date: 20090719
  Serious: No
  Sender: FDA-Public Use
  Company Number: US-BAYER-200912739NA

PATIENT
  Age: 96 Year
  Sex: Female

DRUGS (3)
  1. AVELOX [Suspect]
     Indication: PNEUMONIA
     Dosage: UNIT DOSE: 400 MG
     Dates: start: 20090204
  2. AVELOX [Concomitant]
     Route: 058
  3. DOXYCYCLINE [Concomitant]

REACTIONS (1)
  - NO ADVERSE EVENT [None]
